FAERS Safety Report 9963467 (Version 1)
Quarter: 2014Q1

REPORT INFORMATION
  Report Type: Report from Study
  Country: US (occurrence: US)
  Receive Date: 20140305
  Receipt Date: 20140305
  Transmission Date: 20141002
  Serious: No
  Sender: FDA-Public Use
  Company Number: US-ABBVIE-13P-163-1117935-00

PATIENT
  Age: 63 Year
  Sex: Male

DRUGS (12)
  1. HUMIRA [Suspect]
     Indication: CROHN^S DISEASE
     Dates: start: 20130426
  2. LISINOPRIL [Concomitant]
     Indication: HYPERTENSION
  3. PREDNISONE [Concomitant]
     Indication: GASTROINTESTINAL INFLAMMATION
     Dosage: TAPERING DOSE
  4. PREDNISONE [Concomitant]
     Dosage: TAPERING DOSE
     Dates: start: 20130529
  5. PREDNISONE [Concomitant]
     Dosage: TAPERING DOSE
     Dates: start: 20130605
  6. PREDNISONE [Concomitant]
     Dosage: TAPERING DOSE
     Dates: start: 20130619
  7. PREDNISONE [Concomitant]
     Dosage: TAPERING DOSE
     Dates: start: 20130703
  8. OMEPRAZOLE [Concomitant]
     Indication: DYSPEPSIA
  9. GLUCOSAMINE CHONDROITIN [Concomitant]
     Indication: ARTHRALGIA
     Dosage: 1500/1200 MG
  10. COQ10 [Concomitant]
     Indication: PRODUCT USED FOR UNKNOWN INDICATION
  11. FISH OIL [Concomitant]
     Indication: PRODUCT USED FOR UNKNOWN INDICATION
  12. MULTIVITAMIN [Concomitant]
     Indication: PRODUCT USED FOR UNKNOWN INDICATION

REACTIONS (1)
  - Fatigue [Not Recovered/Not Resolved]
